FAERS Safety Report 7118093-X (Version None)
Quarter: 2010Q4

REPORT INFORMATION
  Report Type: 
  Country: None (occurrence: None)
  Receive Date: 20101123
  Receipt Date: 20101117
  Transmission Date: 20110411
  Serious: No
  Sender: FDA-Public Use
  Company Number: US-PFIZER INC-2010151204

PATIENT
  Sex: Female

DRUGS (6)
  1. XANAX XR [Suspect]
     Indication: BORDERLINE PERSONALITY DISORDER
     Dosage: 1 MG, 1X/DAY
     Route: 048
     Dates: start: 20101012
  2. XANAX XR [Suspect]
     Indication: POST-TRAUMATIC STRESS DISORDER
  3. XANAX XR [Suspect]
     Indication: ANXIETY DISORDER
  4. PRILOSEC [Concomitant]
     Indication: GASTROINTESTINAL DISORDER
     Dosage: UNK
  5. ZOFRAN [Concomitant]
     Indication: GASTROINTESTINAL DISORDER
     Dosage: UNK
  6. TIGAN [Concomitant]
     Indication: GASTROINTESTINAL DISORDER
     Dosage: UNK

REACTIONS (5)
  - HEADACHE [None]
  - NAUSEA [None]
  - PAIN [None]
  - PANIC ATTACK [None]
  - WEIGHT DECREASED [None]
